FAERS Safety Report 7308538-4 (Version None)
Quarter: 2011Q1

REPORT INFORMATION
  Report Type: 
  Country: None (occurrence: None)
  Receive Date: 20110223
  Receipt Date: 20101026
  Transmission Date: 20110831
  Serious: No
  Sender: FDA-Public Use
  Company Number: US-BAYER-201023094BCC

PATIENT
  Sex: Male
  Weight: 87.727 kg

DRUGS (5)
  1. LIPITOR [Concomitant]
  2. METFORMIN [Concomitant]
  3. ATENOLOL [Concomitant]
  4. ALEVE [Suspect]
     Indication: ARTHRITIS
     Dosage: 220 MG, UNK
     Route: 048
     Dates: start: 20101026
  5. ASPIRIN [Concomitant]
     Dosage: 81 UNK, UNK

REACTIONS (6)
  - PRURITUS [None]
  - SKIN WARM [None]
  - THROAT IRRITATION [None]
  - EAR PRURITUS [None]
  - HYPERSENSITIVITY [None]
  - FEELING HOT [None]
